FAERS Safety Report 7468574-4 (Version None)
Quarter: 2011Q2

REPORT INFORMATION
  Report Type: 
  Country: None (occurrence: None)
  Receive Date: 20110509
  Receipt Date: 20110310
  Transmission Date: 20111010
  Serious: Yes (Other)
  Sender: FDA-Public Use
  Company Number: US-BAYER-2011-005078

PATIENT
  Sex: Female
  Weight: 77.551 kg

DRUGS (79)
  1. OMNISCAN [Suspect]
     Indication: NUCLEAR MAGNETIC RESONANCE IMAGING
  2. ALLOPURINOL [Concomitant]
     Dosage: 100 MG, QD
  3. DEXAMETHASONE [Concomitant]
  4. DEXAMETHASONE [Concomitant]
     Dosage: 40 MG, QD
     Route: 048
     Dates: start: 20040223
  5. EPOGEN [Concomitant]
     Dosage: 10000 UNITS, HS
     Route: 042
  6. LEVAQUIN [Concomitant]
     Indication: DEVICE RELATED INFECTION
     Dosage: UNK
     Dates: start: 20040117
  7. COMPAZINE [Concomitant]
     Dosage: 10 MG, Q6HR PRN
     Route: 042
  8. NORCO [Concomitant]
     Indication: PAIN
     Dosage: 10-325 MG, HS PRN
  9. NEUPOGEN [Concomitant]
     Dosage: 300 ?G, QD
     Route: 058
  10. OPTIMARK [Suspect]
     Indication: NUCLEAR MAGNETIC RESONANCE IMAGING
  11. GADOLITE [Suspect]
     Indication: NUCLEAR MAGNETIC RESONANCE IMAGING BRAIN
     Dosage: 20 ML, UNK
     Dates: start: 20030927, end: 20030927
  12. GADOLITE [Suspect]
     Indication: ANGIOGRAM
     Dosage: UNK
     Dates: start: 20040701, end: 20040701
  13. FOLTX [Concomitant]
     Dosage: 1 TAB DAILY
     Dates: start: 20041012
  14. ACYCLOVIR [Concomitant]
     Dosage: 200 MG, QD
     Route: 048
     Dates: start: 20030925
  15. DIGOXIN [Concomitant]
     Indication: SUPRAVENTRICULAR TACHYCARDIA
     Dosage: 0.5 MG, ONCE
     Route: 042
     Dates: start: 20050501
  16. BACTRIM DS [Concomitant]
     Dosage: 800/160 MG, TIW
  17. ADRIAMYCIN PFS [Concomitant]
     Indication: CHEMOTHERAPY
     Dosage: 15.7 MG, IN 250 ML NOMRAL SALINE INFUSE OVER 24 HR DAILY
     Route: 042
     Dates: start: 20040223
  18. REGLAN [Concomitant]
     Indication: NAUSEA
     Dosage: 10 MG, Q6HR PRN
     Route: 048
  19. REGLAN [Concomitant]
     Dosage: 10 MG, Q6HR PRN
     Route: 042
  20. MIDODRINE HYDROCHLORIDE [Concomitant]
     Dosage: 5 MG, ONE-HALF HOUR BEFORE HS
  21. GADOLITE [Suspect]
     Indication: NUCLEAR MAGNETIC RESONANCE IMAGING
     Dosage: 30 ML, ONCE
     Dates: start: 20040115, end: 20040115
  22. PRAVACHOL [Concomitant]
     Indication: HYPERCHOLESTEROLAEMIA
     Dosage: 20 MG, HS
     Dates: start: 20041029
  23. MUCOMYST [Concomitant]
     Dosage: UNK UNK, BID
     Dates: start: 20040826
  24. ATIVAN [Concomitant]
     Indication: ANXIETY
     Dosage: UNK UNK, PRN
  25. ZOLOFT [Concomitant]
     Indication: DEPRESSION
     Dosage: 50 MG, QD
     Dates: start: 20040920
  26. METOPROLOL TARTRATE [Concomitant]
     Dosage: 50 MG, BID
  27. SIMETHICONE [Concomitant]
     Dosage: 80 MG, Q6HR PRN
     Route: 048
  28. DILAUDID [Concomitant]
  29. GADOLITE [Suspect]
     Dosage: UNK
     Dates: start: 20041029, end: 20041029
  30. GADOLITE [Suspect]
     Dosage: 20 ML, UNK
     Dates: start: 20050519, end: 20050519
  31. FOLIC ACID [Concomitant]
     Dosage: 1 MG, QD
     Route: 048
  32. ASPIRIN [Concomitant]
     Dosage: 325 MG, QD
     Dates: start: 20040826
  33. CALCIJEX [Concomitant]
     Dosage: 1 MG, HS
     Route: 042
  34. K-DUR [Concomitant]
     Dosage: 60 MEQ, ONCE
  35. PHOSLO [Concomitant]
     Dosage: 2 TABS TID WITH MEALS
  36. VITAMIN K1 [Concomitant]
     Dosage: 10 MG, OW EVERY MONDAY
     Route: 058
     Dates: start: 20040223
  37. GADOLITE [Suspect]
     Dosage: 20 ML, ONCE
     Dates: start: 20041110, end: 20041110
  38. BICITRA [Concomitant]
  39. DIFLUCAN [Concomitant]
     Dosage: 100 MG, QD
  40. PREVACID [Concomitant]
     Indication: GASTRITIS EROSIVE
     Dosage: 30 MG, QD
  41. LISINOPRIL [Concomitant]
     Dosage: 40 MG, QD
  42. VANCOMYCIN [Concomitant]
     Indication: DEVICE RELATED INFECTION
     Dosage: UNK
     Dates: start: 20040117
  43. OXACILLIN [Concomitant]
     Dosage: UNK
     Dates: start: 20050501
  44. AMBIEN [Concomitant]
     Dosage: 5 MG, HS PRN
     Route: 048
  45. ZEMPLAR [Concomitant]
     Dosage: 4 ?G, HS
     Route: 042
  46. PLENDIL [Concomitant]
     Dosage: 10 MG, QD
     Route: 048
     Dates: start: 20040802
  47. CLONIDINE [Concomitant]
     Dosage: 0.4 MG, BID
     Route: 048
     Dates: start: 20040802
  48. ALBUMIN (HUMAN) [Concomitant]
     Dosage: 150 G, UNK
     Route: 042
  49. ROXANOL [Concomitant]
     Indication: PAIN
     Dosage: UNK UNK, PRN
  50. VELCADE [Concomitant]
     Indication: CHEMOTHERAPY
     Dosage: 2.6 MG, UNK
     Route: 042
     Dates: start: 20030930
  51. CINACALCET [Concomitant]
     Dosage: 90 MG, QD
  52. RENAGEL [Concomitant]
     Dosage: 1600 MG, TID WITH MEALS
  53. MAGNESIUM OXIDE [Concomitant]
     Dosage: 400 MG, UNK
     Route: 048
  54. ATIVAN [Concomitant]
     Dosage: 1 MG, Q4HR PRN
     Route: 042
  55. ACETAMINOPHEN [Concomitant]
     Dosage: 650 MG, 2 TABS PRN
  56. GENTAMICIN [Concomitant]
     Indication: PSEUDOMONAS INFECTION
     Dosage: 80 MG, UNK
     Route: 042
  57. ZOSYN [Concomitant]
     Indication: PSEUDOMONAS INFECTION
     Dosage: 1000 MG, UNK
     Route: 042
  58. COMPAZINE [Concomitant]
     Dosage: 10 MG, Q6HR PRN
     Route: 048
  59. SENOKOT [Concomitant]
     Dosage: ONE BID PRN
  60. RENAPHRO [Concomitant]
  61. MAGNEVIST [Suspect]
     Indication: NUCLEAR MAGNETIC RESONANCE IMAGING
  62. GADOLITE [Suspect]
     Dosage: UNK
     Dates: start: 20041031, end: 20041031
  63. GADOLITE [Suspect]
     Dosage: UNK
     Dates: start: 20041213, end: 20041213
  64. GADOLITE [Suspect]
     Dosage: UNK
     Dates: start: 20050520, end: 20050520
  65. ADENOSINE [Concomitant]
     Indication: SUPRAVENTRICULAR TACHYCARDIA
     Dosage: 6 MG, ONCE
     Dates: start: 20050501
  66. TYLENOL W/ CODEINE NO. 3 [Concomitant]
     Dosage: 2 TABS EVERY 4 HOURS AS NEEDED
     Dates: start: 20040827
  67. BIAXIN [Concomitant]
     Indication: GASTRITIS EROSIVE
  68. ATARAX [Concomitant]
     Dosage: UNK
     Dates: start: 20050501
  69. CIPROFLOXACIN [Concomitant]
     Dosage: 500 MG, QD
     Dates: start: 20040101
  70. NEPHROCAPS [Concomitant]
     Dosage: 1 CAP, QD
     Route: 048
  71. VITAMIN K1 [Concomitant]
     Dosage: 10 MG, OW EVERY MONDAY
     Route: 048
     Dates: start: 20040223
  72. ETOPOSIDE [Concomitant]
     Indication: CHEMOTHERAPY
     Dosage: 62.8 MG, IN 1 LITER NORMAL SALINE AND INFUSE OVER 24 HR DAILY
     Route: 042
     Dates: start: 20040223
  73. LOPERAMIDE [Concomitant]
     Dosage: 2 MG, PRN
     Route: 048
  74. HYDROXYZINE [Concomitant]
     Indication: PRURITUS
     Dosage: 25 MG, Q12 HR PRN
  75. NEURONTIN [Concomitant]
     Indication: HERPES ZOSTER
  76. ATIVAN [Concomitant]
     Dosage: 1 MG, Q4HR PRN
     Route: 048
  77. PLAVIX [Concomitant]
     Dosage: 75 MG, QD
     Dates: start: 20041101
  78. CYCLOPHOSPHAMIDE [Concomitant]
     Indication: CHEMOTHERAPY
     Dosage: 628 MG, IN 1 LITER NORMAL SALINE INFUSE OVER 24 HR DAILY
     Route: 042
     Dates: start: 20040223
  79. OCEAN [Concomitant]
     Dosage: UNK UNK, BID PRN
     Route: 045

REACTIONS (22)
  - NEPHROGENIC SYSTEMIC FIBROSIS [None]
  - FATIGUE [None]
  - JOINT RANGE OF MOTION DECREASED [None]
  - SCAR [None]
  - SKIN INDURATION [None]
  - JOINT STIFFNESS [None]
  - OEDEMA PERIPHERAL [None]
  - DEFORMITY [None]
  - MUSCULOSKELETAL STIFFNESS [None]
  - SKIN EXFOLIATION [None]
  - PAIN [None]
  - SKIN HYPERPIGMENTATION [None]
  - PAIN OF SKIN [None]
  - FIBROSIS [None]
  - SKIN TIGHTNESS [None]
  - CELLULITIS [None]
  - DRY SKIN [None]
  - SKIN HYPERTROPHY [None]
  - ERYTHEMA [None]
  - SKIN FIBROSIS [None]
  - MOBILITY DECREASED [None]
  - SKIN PLAQUE [None]
